FAERS Safety Report 12587360 (Version 1)
Quarter: 2016Q3

REPORT INFORMATION
  Report Type: Spontaneous
  Country: GB (occurrence: GB)
  Receive Date: 20160725
  Receipt Date: 20160725
  Transmission Date: 20161109
  Serious: Yes (Other)
  Sender: FDA-Public Use
  Company Number: GB-TEVA-677540ACC

PATIENT
  Age: 55 Year
  Sex: Male
  Weight: 75 kg

DRUGS (5)
  1. SIMVASTATIN. [Concomitant]
     Active Substance: SIMVASTATIN
  2. LANSOPRAZOLE. [Suspect]
     Active Substance: LANSOPRAZOLE
     Indication: BARRETT^S OESOPHAGUS
     Dosage: THE DOSE WAS REDUCED FROM 30 TO 15MG AND THEN GRADUALLY WEANED HIMSELF OFF THAT
     Route: 048
     Dates: start: 19980301, end: 201507
  3. COLLAGEN [Concomitant]
     Active Substance: COLLAGEN
  4. GLUCOSAMINE SULPHATE [Concomitant]
     Active Substance: GLUCOSAMINE
  5. RAMIPRIL. [Concomitant]
     Active Substance: RAMIPRIL

REACTIONS (4)
  - Pain in extremity [Recovered/Resolved]
  - Arthralgia [Recovered/Resolved]
  - Gout [Recovered/Resolved]
  - Joint swelling [Recovered/Resolved]

NARRATIVE: CASE EVENT DATE: 1998
